FAERS Safety Report 9115781 (Version 1)
Quarter: 2013Q1

REPORT INFORMATION
  Report Type: Spontaneous
  Country: GB (occurrence: GB)
  Receive Date: 20130224
  Receipt Date: 20130224
  Transmission Date: 20140127
  Serious: Yes (Disabling)
  Sender: FDA-Public Use
  Company Number: GB-TEVA-386596ISR

PATIENT
  Age: 57 Year
  Sex: Female

DRUGS (7)
  1. NITROFURANTOIN [Suspect]
     Indication: URINARY TRACT INFECTION
     Dosage: 200 MILLIGRAM DAILY;
     Route: 048
     Dates: start: 20111017, end: 20111024
  2. NITROFURANTOIN [Suspect]
     Dosage: 200 MILLIGRAM DAILY;
     Route: 048
     Dates: start: 20111104, end: 20111111
  3. NITROFURANTOIN [Suspect]
     Dosage: 200 MILLIGRAM DAILY;
     Route: 048
     Dates: start: 20120113, end: 20120118
  4. NITROFURANTOIN [Suspect]
     Dosage: 200 MILLIGRAM DAILY;
     Route: 048
     Dates: start: 20120206, end: 20120213
  5. HYDROXYCARBAMIDE [Concomitant]
     Indication: POLYCYTHAEMIA
     Dosage: 2 GRAM DAILY; ONGOING
     Route: 048
     Dates: start: 201008
  6. THYROXINE [Concomitant]
     Indication: HYPOTHYROIDISM
     Dosage: ONGOING
     Route: 048
     Dates: start: 201007
  7. ASPIRIN [Concomitant]
     Dosage: ONGOING
     Route: 048
     Dates: start: 201008

REACTIONS (6)
  - Nausea [Not Recovered/Not Resolved]
  - Cough [Not Recovered/Not Resolved]
  - Paraesthesia [Not Recovered/Not Resolved]
  - Pyrexia [Not Recovered/Not Resolved]
  - Pain [Not Recovered/Not Resolved]
  - Dizziness [Not Recovered/Not Resolved]
